FAERS Safety Report 7408960-1 (Version None)
Quarter: 2011Q2

REPORT INFORMATION
  Report Type: 
  Country: None (occurrence: None)
  Receive Date: 20110407
  Receipt Date: 20110407
  Transmission Date: 20111010
  Serious: No
  Sender: FDA-Public Use
  Company Number: None

PATIENT
  Age: 35 Year
  Sex: Female

DRUGS (6)
  1. LYRICA [Concomitant]
  2. VEROPAMIL [Concomitant]
  3. PREDNISONE [Concomitant]
  4. GAMMAGARD [Suspect]
     Indication: MYOSITIS
     Dosage: 20G QD X 3DAYS Q4 WKS IV
     Route: 042
     Dates: start: 20110222
  5. AMITRIPTYLINE [Concomitant]
  6. PEPCID [Concomitant]

REACTIONS (1)
  - PAIN IN EXTREMITY [None]
